FAERS Safety Report 16964765 (Version 1)
Quarter: 2019Q4

REPORT INFORMATION
  Report Type: Spontaneous
  Country: CH (occurrence: CH)
  Receive Date: 20191028
  Receipt Date: 20191028
  Transmission Date: 20200122
  Serious: Yes (Other)
  Sender: FDA-Public Use
  Company Number: CH-TEVA-2019-CH-1126913

PATIENT
  Sex: Female

DRUGS (2)
  1. HYDROCORTISONE. [Suspect]
     Active Substance: HYDROCORTISONE
     Route: 065
  2. METHOTREXATE. [Suspect]
     Active Substance: METHOTREXATE
     Route: 065

REACTIONS (3)
  - Drug dependence [Unknown]
  - Adverse event [Unknown]
  - Pneumocystis jirovecii pneumonia [Unknown]
